FAERS Safety Report 5499294-3 (Version None)
Quarter: 2007Q4

REPORT INFORMATION
  Report Type: 
  Country: None (occurrence: None)
  Receive Date: 20071026
  Receipt Date: 20071008
  Transmission Date: 20080405
  Serious: Yes (Other)
  Sender: FDA-Public Use
  Company Number: CH-JNJFOC-20071006036

PATIENT
  Age: 73 Year
  Sex: Male

DRUGS (4)
  1. INFLIXIMAB [Suspect]
     Dosage: 9TH INFUSION
     Route: 042
  2. INFLIXIMAB [Suspect]
     Indication: CROHN'S DISEASE
     Dosage: INFUSIONS 1-8
     Route: 042
  3. IMUREK [Concomitant]
     Indication: CROHN'S DISEASE
  4. SOLU-CORTEF [Concomitant]
     Indication: PREMEDICATION
     Route: 042

REACTIONS (1)
  - SYSTEMIC LUPUS ERYTHEMATOSUS [None]
